FAERS Safety Report 26187948 (Version 2)
Quarter: 2025Q4

REPORT INFORMATION
  Report Type: Spontaneous
  Country: US (occurrence: US)
  Receive Date: 20251222
  Receipt Date: 20251230
  Transmission Date: 20260118
  Serious: Yes (Death, Life-Threatening, Hospitalization, Other)
  Sender: SANOFI AVENTIS
  Company Number: US-DialogSolutions-SAAVPROD-PI856750-C1

PATIENT
  Age: 52 Year
  Sex: Male

DRUGS (3)
  1. OXALIPLATIN [Suspect]
     Active Substance: OXALIPLATIN
     Indication: Adenocarcinoma gastric
     Dosage: UNK, QCY
  2. FLUOROURACIL [Suspect]
     Active Substance: FLUOROURACIL
     Indication: Adenocarcinoma gastric
     Dosage: UNK, QCY
  3. LEUCOVORIN [Suspect]
     Active Substance: LEUCOVORIN\LEUCOVORIN CALCIUM
     Indication: Adenocarcinoma gastric
     Dosage: UNK, QCY

REACTIONS (18)
  - Tumour lysis syndrome [Fatal]
  - Hyperuricaemia [Fatal]
  - Hyperkalaemia [Fatal]
  - Hyperphosphataemia [Fatal]
  - Hypocalcaemia [Fatal]
  - Acute kidney injury [Fatal]
  - Myelosuppression [Fatal]
  - Neutropenia [Fatal]
  - Thrombocytopenia [Fatal]
  - Gastrointestinal haemorrhage [Fatal]
  - Multiple organ dysfunction syndrome [Fatal]
  - Acute respiratory failure [Fatal]
  - Cardiac arrest [Fatal]
  - Septic shock [Fatal]
  - Sepsis [Fatal]
  - Candida infection [Fatal]
  - Stenotrophomonas infection [Fatal]
  - Off label use [Unknown]
